FAERS Safety Report 4762832-X (Version None)
Quarter: 2005Q3

REPORT INFORMATION
  Report Type: 
  Country: None (occurrence: None)
  Receive Date: 20050907
  Receipt Date: 20050905
  Transmission Date: 20060218
  Serious: Yes (Death, Hospitalization)
  Sender: FDA-Public Use
  Company Number: PHRM2005FR02367

PATIENT
  Age: 58 Year
  Sex: Male

DRUGS (11)
  1. PROGRAF [Suspect]
     Indication: RENAL TRANSPLANT
     Dosage: 0.5 MG DAILY
     Dates: start: 20040301, end: 20050510
  2. CELLCEPT [Suspect]
     Indication: RENAL TRANSPLANT
     Dates: start: 20040301, end: 20040701
  3. ARANESP [Suspect]
     Dosage: 30 A?G PER DAY
     Dates: start: 20050201, end: 20050510
  4. TARDYFERON [Concomitant]
  5. FORTUM [Concomitant]
     Dosage: 1 G DAILY
     Dates: start: 20050401
  6. LASILIX [Concomitant]
     Dosage: 40 MG DAILY
  7. EPREX [Concomitant]
     Dosage: 5000 IU, QW3
     Dates: start: 20050510
  8. ALLOPURINOL [Concomitant]
  9. AMIKLIN [Concomitant]
     Dates: start: 20050401
  10. VANCOMYCIN [Concomitant]
     Dates: start: 20050401
  11. NEORAL [Suspect]
     Indication: RENAL TRANSPLANT
     Route: 048
     Dates: end: 20040301

REACTIONS (30)
  - ALANINE AMINOTRANSFERASE INCREASED [None]
  - ASPARTATE AMINOTRANSFERASE INCREASED [None]
  - BILIRUBIN CONJUGATED INCREASED [None]
  - BLOOD BICARBONATE DECREASED [None]
  - BLOOD BILIRUBIN INCREASED [None]
  - BLOOD LACTATE DEHYDROGENASE INCREASED [None]
  - BLOOD LACTIC ACID INCREASED [None]
  - C-REACTIVE PROTEIN INCREASED [None]
  - DEPRESSED LEVEL OF CONSCIOUSNESS [None]
  - DIARRHOEA [None]
  - DIARRHOEA INFECTIOUS [None]
  - EFFUSION [None]
  - HAEMOGLOBIN DECREASED [None]
  - HAEMOLYTIC ANAEMIA [None]
  - HEPATITIS CHOLESTATIC [None]
  - HISTIOCYTOSIS HAEMATOPHAGIC [None]
  - HYPERTHERMIA [None]
  - HYPERTRIGLYCERIDAEMIA [None]
  - HYPOGAMMAGLOBULINAEMIA [None]
  - INFECTION [None]
  - JAUNDICE [None]
  - LYMPHOMA [None]
  - METABOLIC ACIDOSIS [None]
  - MICROCYTIC ANAEMIA [None]
  - MULTI-ORGAN FAILURE [None]
  - NEPHROPATHY TOXIC [None]
  - PROTHROMBIN LEVEL DECREASED [None]
  - RED BLOOD CELL SCHISTOCYTES PRESENT [None]
  - RENAL IMPAIRMENT [None]
  - SIGMOIDOSCOPY ABNORMAL [None]
